FAERS Safety Report 11115519 (Version 1)
Quarter: 2015Q2

REPORT INFORMATION
  Report Type: Spontaneous
  Country: PE (occurrence: PE)
  Receive Date: 20150515
  Receipt Date: 20150515
  Transmission Date: 20150821
  Serious: Yes (Hospitalization)
  Sender: FDA-Public Use
  Company Number: PE-PFIZER INC-2015029433

PATIENT
  Age: 84 Year
  Sex: Male

DRUGS (2)
  1. ACCUPRIL [Suspect]
     Active Substance: QUINAPRIL HYDROCHLORIDE
     Dosage: 10 MG (1/2 TABLET), 1X/DAY
     Dates: start: 2000
  2. ACCUPRIL [Suspect]
     Active Substance: QUINAPRIL HYDROCHLORIDE
     Indication: HYPERTENSION
     Dosage: 5 MG (1/4 TABLET), UNK

REACTIONS (5)
  - Condition aggravated [Recovered/Resolved]
  - Hypotension [Unknown]
  - Wrong technique in drug usage process [Not Recovered/Not Resolved]
  - Feeling abnormal [Unknown]
  - Diabetes mellitus [Recovered/Resolved]

NARRATIVE: CASE EVENT DATE: 2000
